FAERS Safety Report 20369117 (Version 1)
Quarter: 2022Q1

REPORT INFORMATION
  Report Type: Spontaneous
  Country: IE (occurrence: IE)
  Receive Date: 20220124
  Receipt Date: 20220124
  Transmission Date: 20220423
  Serious: Yes (Other)
  Sender: FDA-Public Use
  Company Number: IE-SA-SAC20220114000255

PATIENT
  Age: 33 Year
  Sex: Female

DRUGS (1)
  1. LEMTRADA [Suspect]
     Active Substance: ALEMTUZUMAB
     Dosage: UNK
     Dates: start: 2019, end: 201907

REACTIONS (7)
  - Loss of consciousness [Unknown]
  - Eye contusion [Unknown]
  - Disorientation [Unknown]
  - Nasal injury [Unknown]
  - Pain [Unknown]
  - Dizziness [Unknown]
  - Exposure during pregnancy [Unknown]

NARRATIVE: CASE EVENT DATE: 20220101
